FAERS Safety Report 9480240 (Version 1)
Quarter: 2013Q3

REPORT INFORMATION
  Report Type: Spontaneous
  Country: US (occurrence: US)
  Receive Date: 20130828
  Receipt Date: 20130828
  Transmission Date: 20140515
  Serious: Yes (Death, Hospitalization)
  Sender: FDA-Public Use
  Company Number: US-AMGEN-KDL088483

PATIENT
  Age: 81 Year
  Sex: Female

DRUGS (4)
  1. ENBREL [Suspect]
     Indication: RHEUMATOID ARTHRITIS
     Dosage: UNK UNK, 2 TIMES/WK
     Route: 058
     Dates: start: 20000101
  2. METHOTREXATE [Concomitant]
  3. ACETAMINOPHEN [Concomitant]
  4. ANTIHYPERTENSIVES [Concomitant]

REACTIONS (5)
  - Respiratory arrest [Fatal]
  - Cardiac failure [Fatal]
  - Respiratory tract infection [Unknown]
  - Knee operation [Unknown]
  - Road traffic accident [Unknown]
